FAERS Safety Report 7509875-0 (Version None)
Quarter: 2011Q2

REPORT INFORMATION
  Report Type: 
  Country: None (occurrence: None)
  Receive Date: 20110527
  Receipt Date: 20110523
  Transmission Date: 20111010
  Serious: Yes (Hospitalization)
  Sender: FDA-Public Use
  Company Number: R0017529A

PATIENT
  Age: 82 Year
  Sex: Female
  Weight: 73.18 kg

DRUGS (5)
  1. BLINDED VACCINE [Suspect]
     Route: 030
     Dates: start: 20110318, end: 20110318
  2. MAXZIDE [Suspect]
     Indication: HYPERTENSION
     Dosage: 37.5MG PER DAY
     Route: 048
     Dates: start: 20050101
  3. HYZAAR [Suspect]
     Indication: HYPERTENSION
     Dosage: 50MG PER DAY
     Route: 048
     Dates: start: 20050101
  4. AMLODIPINE BESYLATE [Suspect]
     Indication: HYPERTENSION
     Dosage: 5MG PER DAY
     Route: 048
     Dates: start: 20100301
  5. POTASSIUM GLUCONATE TAB [Suspect]
     Route: 048
     Dates: start: 20090101

REACTIONS (1)
  - DYSPNOEA [None]
